FAERS Safety Report 15580003 (Version 1)
Quarter: 2018Q4

REPORT INFORMATION
  Report Type: Report from Study
  Country: None (occurrence: US)
  Receive Date: 20181102
  Receipt Date: 20181102
  Transmission Date: 20190205
  Serious: Yes (Hospitalization, Other)
  Sender: FDA-Public Use
  Company Number: US-ABBVIE-18K-163-2520794-00

PATIENT
  Age: 61 Year
  Sex: Female
  Weight: 80.36 kg

DRUGS (7)
  1. FENTANYL. [Concomitant]
     Active Substance: FENTANYL
     Indication: FIBROMYALGIA
  2. METHOTREXATE. [Concomitant]
     Active Substance: METHOTREXATE
     Indication: RHEUMATOID ARTHRITIS
  3. TRAMADOL. [Concomitant]
     Active Substance: TRAMADOL
     Indication: FIBROMYALGIA
  4. FENTANYL. [Concomitant]
     Active Substance: FENTANYL
     Indication: PAIN
  5. HUMIRA [Suspect]
     Active Substance: ADALIMUMAB
     Indication: RHEUMATOID ARTHRITIS
     Dosage: DRUG START DATE 2011 OR 2012
     Route: 058
  6. HUMIRA [Suspect]
     Active Substance: ADALIMUMAB
     Indication: PSORIATIC ARTHROPATHY
     Route: 058
     Dates: start: 2015
  7. TRAMADOL. [Concomitant]
     Active Substance: TRAMADOL
     Indication: PAIN

REACTIONS (14)
  - Osteoarthritis [Recovered/Resolved]
  - Hypoaesthesia [Not Recovered/Not Resolved]
  - Insomnia [Recovered/Resolved]
  - Ear pain [Recovered/Resolved]
  - Rotator cuff syndrome [Recovered/Resolved]
  - Musculoskeletal pain [Not Recovered/Not Resolved]
  - Calcinosis [Recovered/Resolved]
  - Glossodynia [Recovering/Resolving]
  - Arthritis [Recovered/Resolved]
  - Otorrhoea [Unknown]
  - Lymphoid tissue hyperplasia [Recovered/Resolved]
  - Benign neoplasm of skin [Recovered/Resolved]
  - Tonsillar hypertrophy [Recovered/Resolved]
  - Ear discomfort [Recovered/Resolved]

NARRATIVE: CASE EVENT DATE: 2014
